FAERS Safety Report 7443878-X (Version None)
Quarter: 2011Q2

REPORT INFORMATION
  Report Type: 
  Country: None (occurrence: None)
  Receive Date: 20110428
  Receipt Date: 20110421
  Transmission Date: 20111010
  Serious: Yes (Hospitalization, Other)
  Sender: FDA-Public Use
  Company Number: US-CEPHALON-2011001996

PATIENT
  Sex: Male
  Weight: 188 kg

DRUGS (17)
  1. ATROPINE [Concomitant]
     Dates: start: 20110301
  2. ALPHAGAN [Concomitant]
     Dates: start: 20110301
  3. VITAMIN C [Concomitant]
  4. VITAMIN D [Concomitant]
  5. MULTI-VITAMINS [Concomitant]
  6. PROVIGIL [Suspect]
     Indication: NARCOLEPSY
  7. TYLENOL W/ CODEINE NO. 3 [Concomitant]
     Dates: start: 20110301
  8. ADVAIR DISKUS 100/50 [Concomitant]
     Dates: start: 20110301
  9. FLONASE [Concomitant]
     Dates: start: 20110301
  10. OFLOXACIN [Concomitant]
     Dates: start: 20110420
  11. PROVIGIL [Suspect]
     Indication: SLEEP APNOEA SYNDROME
     Route: 048
     Dates: start: 20070421
  12. LORTAB [Concomitant]
  13. OSYCONTIN [Concomitant]
     Dates: start: 20110301
  14. ZYTEC [Concomitant]
  15. LASIX [Concomitant]
     Dates: start: 20110301
  16. FISH OIL [Concomitant]
  17. PREDNISONE FORTE [Concomitant]
     Dates: start: 20110301

REACTIONS (4)
  - BLINDNESS [None]
  - OXYGEN SATURATION DECREASED [None]
  - EYE PENETRATION [None]
  - DRUG INTOLERANCE [None]
